FAERS Safety Report 13328618 (Version 1)
Quarter: 2017Q1

REPORT INFORMATION
  Report Type: Spontaneous
  Country: US (occurrence: US)
  Receive Date: 20170313
  Receipt Date: 20170313
  Transmission Date: 20170428
  Serious: No
  Sender: FDA-Public Use
  Company Number: US-JNJFOC-20170116307

PATIENT
  Age: 72 Year
  Sex: Female
  Weight: 52.16 kg

DRUGS (2)
  1. ZYRTEC-D [Suspect]
     Active Substance: CETIRIZINE HYDROCHLORIDE\PSEUDOEPHEDRINE HYDROCHLORIDE
     Route: 048
  2. ZYRTEC-D [Suspect]
     Active Substance: CETIRIZINE HYDROCHLORIDE\PSEUDOEPHEDRINE HYDROCHLORIDE
     Indication: HYPERSENSITIVITY
     Dosage: 1-2 TIMES DAILY, 1X PER MONTH
     Route: 048
     Dates: start: 20120116

REACTIONS (6)
  - Product expiration date issue [Unknown]
  - Laceration [Not Recovered/Not Resolved]
  - Product lot number issue [Unknown]
  - Wound haemorrhage [Not Recovered/Not Resolved]
  - Drug administration error [Unknown]
  - Product closure removal difficult [Unknown]

NARRATIVE: CASE EVENT DATE: 20170116
